FAERS Safety Report 4983780-6 (Version None)
Quarter: 2006Q1

REPORT INFORMATION
  Report Type: 
  Country: None (occurrence: None)
  Receive Date: 20060302
  Receipt Date: 20060120
  Transmission Date: 20060701
  Serious: No
  Sender: FDA-Public Use
  Company Number: PHEH2006US01179

PATIENT
  Age: 19 Year
  Sex: Female
  Weight: 53 kg

DRUGS (1)
  1. EXJADE [Suspect]
     Dosage: 1500 MG, QD, ORAL
     Route: 048
     Dates: start: 20060104, end: 20060113

REACTIONS (3)
  - PRURITUS [None]
  - RASH [None]
  - URTICARIA [None]
